FAERS Safety Report 19653178 (Version 3)
Quarter: 2021Q3

REPORT INFORMATION
  Report Type: Spontaneous
  Country: US (occurrence: US)
  Receive Date: 20210803
  Receipt Date: 20210923
  Transmission Date: 20211014
  Serious: Yes (Death, Other)
  Sender: FDA-Public Use
  Company Number: US-PFIZER INC-202100944027

PATIENT
  Age: 69 Year
  Sex: Female
  Weight: 85.71 kg

DRUGS (2)
  1. IBRANCE [Suspect]
     Active Substance: PALBOCICLIB
     Dosage: 75 MG, DAYS 1?28
     Route: 048
     Dates: start: 20201008
  2. IBRANCE [Suspect]
     Active Substance: PALBOCICLIB
     Indication: BREAST CANCER STAGE IV
     Dosage: 75 MG, DAYS 1?28
     Route: 048
     Dates: start: 20200707, end: 20200807

REACTIONS (4)
  - Pneumonia [Fatal]
  - Lung infiltration [Fatal]
  - Acute respiratory failure [Fatal]
  - Thrombocytopenia [Not Recovered/Not Resolved]

NARRATIVE: CASE EVENT DATE: 202104
